FAERS Safety Report 5695344-X (Version None)
Quarter: 2008Q2

REPORT INFORMATION
  Report Type: 
  Country: None (occurrence: None)
  Receive Date: 20080404
  Receipt Date: 20080402
  Transmission Date: 20081010
  Serious: Yes (Hospitalization)
  Sender: FDA-Public Use
  Company Number: FR-MERCK-0803FRA00069

PATIENT
  Age: 86 Year
  Sex: Female

DRUGS (7)
  1. ZOCOR [Suspect]
     Indication: HYPERCHOLESTEROLAEMIA
     Route: 048
     Dates: end: 20080207
  2. ALTHIAZIDE AND SPIRONOLACTONE [Concomitant]
     Indication: CARDIAC FAILURE CONGESTIVE
     Route: 048
     Dates: end: 20080207
  3. SPIRONOLACTONE [Concomitant]
     Indication: CARDIAC FAILURE CONGESTIVE
     Route: 048
     Dates: end: 20080207
  4. ACETAMINOPHEN AND CAFFEINE AND OPIUM [Suspect]
     Route: 048
     Dates: end: 20080207
  5. ACETAMINOPHEN [Suspect]
     Route: 048
     Dates: end: 20080207
  6. RILMENIDINE PHOSPHATE [Concomitant]
     Indication: HYPERTENSION
     Route: 048
     Dates: end: 20080207
  7. AMIODARONE [Concomitant]
     Route: 048
     Dates: end: 20080207

REACTIONS (3)
  - CYTOLYTIC HEPATITIS [None]
  - RENAL FAILURE ACUTE [None]
  - RENAL TUBULAR NECROSIS [None]
